FAERS Safety Report 4294809-5 (Version None)
Quarter: 2004Q1

REPORT INFORMATION
  Report Type: 
  Country: None (occurrence: None)
  Receive Date: 20040216
  Receipt Date: 20030102
  Transmission Date: 20041129
  Serious: No
  Sender: FDA-Public Use
  Company Number: US-GLAXOSMITHKLINE-A0390384A

PATIENT
  Age: 39 Year
  Sex: Female

DRUGS (3)
  1. LAMICTAL [Suspect]
     Dosage: 50MG PER DAY
     Route: 048
     Dates: start: 20020101
  2. MULTIVITAMIN [Concomitant]
  3. ABILIFY [Concomitant]
     Indication: SCHIZOPHRENIA
     Dates: start: 20021224

REACTIONS (1)
  - OEDEMA [None]
